FAERS Safety Report 25758136 (Version 1)
Quarter: 2025Q3

REPORT INFORMATION
  Report Type: Spontaneous
  Country: US (occurrence: US)
  Receive Date: 20250903
  Receipt Date: 20250903
  Transmission Date: 20251020
  Serious: Yes (Other)
  Sender: NOVARTIS
  Company Number: US-002147023-NVSC2025US133287

PATIENT
  Sex: Female

DRUGS (1)
  1. COARTEM [Suspect]
     Active Substance: ARTEMETHER\LUMEFANTRINE
     Indication: Malaria
     Dosage: UNK (8-120MG) (MOUTH) (DAILY)
     Route: 048
     Dates: start: 2023

REACTIONS (4)
  - Critical illness [Unknown]
  - Product supply issue [Unknown]
  - Nausea [Unknown]
  - Intentional overdose [Unknown]
